FAERS Safety Report 7824976-5 (Version None)
Quarter: 2011Q4

REPORT INFORMATION
  Report Type: 
  Country: None (occurrence: None)
  Receive Date: 20111019
  Receipt Date: 20110421
  Transmission Date: 20120403
  Serious: No
  Sender: FDA-Public Use
  Company Number: US-BRISTOL-MYERS SQUIBB COMPANY-15633613

PATIENT
  Sex: Female

DRUGS (1)
  1. AVALIDE [Suspect]
     Dosage: STOPPED FOR 3 DAYS THEN RESTARTED

REACTIONS (2)
  - HEADACHE [None]
  - DIZZINESS [None]
